FAERS Safety Report 12402019 (Version 1)
Quarter: 2016Q2

REPORT INFORMATION
  Report Type: Spontaneous
  Country: US (occurrence: US)
  Receive Date: 20160525
  Receipt Date: 20160525
  Transmission Date: 20160815
  Serious: Yes (Other)
  Sender: FDA-Public Use
  Company Number: US-ASTELLAS-2015US024867

PATIENT
  Sex: Female

DRUGS (1)
  1. ADENOSCAN [Suspect]
     Active Substance: ADENOSINE
     Indication: PRODUCT USED FOR UNKNOWN INDICATION
     Dosage: UNKNOW ROUTE DOSE AND FREQUENCY
     Route: 065

REACTIONS (1)
  - Cardiac arrest [Unknown]
